FAERS Safety Report 23885931 (Version 1)
Quarter: 2024Q2

REPORT INFORMATION
  Report Type: Spontaneous
  Country: US (occurrence: None)
  Receive Date: 20240522
  Receipt Date: 20240522
  Transmission Date: 20240716
  Serious: Yes (Hospitalization)
  Sender: FDA-Public Use
  Company Number: None

PATIENT
  Age: 20 Year
  Sex: Male

DRUGS (1)
  1. TOBRAMYCIN [Suspect]
     Active Substance: TOBRAMYCIN\TOBRAMYCIN SULFATE
     Indication: Lung disorder
     Dosage: FREQUENCY : TWICE A DAY;?
     Dates: start: 202311

REACTIONS (2)
  - Rhinovirus infection [None]
  - Pseudomonas infection [None]

NARRATIVE: CASE EVENT DATE: 20240502
